FAERS Safety Report 10648204 (Version 1)
Quarter: 2014Q4

REPORT INFORMATION
  Report Type: Spontaneous
  Country: US (occurrence: None)
  Receive Date: 20141211
  Receipt Date: 20141211
  Transmission Date: 20150529
  Serious: Yes (Other)
  Sender: FDA-Public Use
  Company Number: None

PATIENT
  Age: 49 Year
  Sex: Female
  Weight: 68.04 kg

DRUGS (1)
  1. LIDOCAINE. [Suspect]
     Active Substance: LIDOCAINE
     Indication: ANKLE FRACTURE
     Dates: start: 201409, end: 20141117

REACTIONS (3)
  - Sensory disturbance [None]
  - Wrong technique in drug usage process [None]
  - Musculoskeletal disorder [None]
